FAERS Safety Report 7963565-9 (Version None)
Quarter: 2011Q4

REPORT INFORMATION
  Report Type: 
  Country: None (occurrence: None)
  Receive Date: 20111208
  Receipt Date: 20111202
  Transmission Date: 20120403
  Serious: No
  Sender: FDA-Public Use
  Company Number: US-B.I. PHARMACEUTICALS,INC./RIDGEFIELD-2011-BP-27291BP

PATIENT
  Age: 80 Year
  Sex: Female

DRUGS (1)
  1. ZANTAC 150 [Suspect]
     Indication: HIATUS HERNIA
     Route: 048
     Dates: start: 20111201

REACTIONS (2)
  - NAUSEA [None]
  - NASAL CONGESTION [None]
